FAERS Safety Report 5110231-3 (Version None)
Quarter: 2006Q3

REPORT INFORMATION
  Report Type: 
  Country: None (occurrence: None)
  Receive Date: 20060921
  Receipt Date: 20060811
  Transmission Date: 20061208
  Serious: Yes (Hospitalization)
  Sender: FDA-Public Use
  Company Number: JP-ROCHE-459317

PATIENT
  Age: 50 Year
  Sex: Male

DRUGS (3)
  1. PANALDINE [Suspect]
     Indication: THROMBOSIS PROPHYLAXIS
     Dosage: OTHER INDICATION REPORTED STENT PLACEMENT, ACUTE MYOCARDIAL INFARCTION
     Route: 048
     Dates: start: 20060711, end: 20060728
  2. ASPIRIN [Concomitant]
     Indication: THROMBOSIS PROPHYLAXIS
     Dosage: OTHER INDICATIONS STENT PLACEMENT AND ACUTE MYOCARDIAL INFARCTION
     Route: 048
     Dates: start: 20060711
  3. RENIVACE [Concomitant]
     Indication: ACUTE MYOCARDIAL INFARCTION
     Route: 048
     Dates: start: 20060711

REACTIONS (3)
  - DRUG ERUPTION [None]
  - NASOPHARYNGITIS [None]
  - URTICARIA [None]
